FAERS Safety Report 7688276-9 (Version None)
Quarter: 2011Q3

REPORT INFORMATION
  Report Type: 
  Country: None (occurrence: None)
  Receive Date: 20110817
  Receipt Date: 20101115
  Transmission Date: 20111222
  Serious: No
  Sender: FDA-Public Use
  Company Number: US-KINGPHARMUSA00001-K201001400

PATIENT
  Sex: Female

DRUGS (2)
  1. LEVOTHYROXINE SODIUM [Concomitant]
     Dosage: 100 MCG, QD
     Route: 048
     Dates: start: 20000101
  2. CYTOMEL [Suspect]
     Indication: HYPOTHYROIDISM
     Dosage: 75 MCG, QD
     Route: 048

REACTIONS (3)
  - VULVOVAGINAL PAIN [None]
  - VULVOVAGINAL PRURITUS [None]
  - VULVOVAGINAL DISCOMFORT [None]
